FAERS Safety Report 19873518 (Version 1)
Quarter: 2021Q3

REPORT INFORMATION
  Report Type: Spontaneous
  Country: FR (occurrence: FR)
  Receive Date: 20210922
  Receipt Date: 20210922
  Transmission Date: 20211014
  Serious: Yes (Disabling, Other)
  Sender: FDA-Public Use
  Company Number: FR-ABBVIE-21K-056-4083344-00

PATIENT
  Age: 42 Year
  Sex: Male
  Weight: 98 kg

DRUGS (3)
  1. BACLOFEN. [Concomitant]
     Active Substance: BACLOFEN
     Indication: PRODUCT USED FOR UNKNOWN INDICATION
  2. NOOTROPYL [Concomitant]
     Active Substance: PIRACETAM
     Indication: PRODUCT USED FOR UNKNOWN INDICATION
  3. DEPAKINE CHRONO [Suspect]
     Active Substance: VALPROATE SODIUM
     Indication: EPILEPSY
     Route: 048

REACTIONS (16)
  - Muscle rigidity [Not Recovered/Not Resolved]
  - Eye disorder [Unknown]
  - Asthenia [Unknown]
  - Speech disorder [Unknown]
  - Epilepsy [Unknown]
  - Malaise [Unknown]
  - Fall [Unknown]
  - Gait disturbance [Unknown]
  - Nervous system disorder [Unknown]
  - Tremor [Not Recovered/Not Resolved]
  - Muscle disorder [Unknown]
  - Muscle atrophy [Not Recovered/Not Resolved]
  - Paralysis [Not Recovered/Not Resolved]
  - Weight increased [Unknown]
  - Muscle twitching [Not Recovered/Not Resolved]
  - Dyspnoea [Unknown]
